FAERS Safety Report 23643870 (Version 5)
Quarter: 2024Q2

REPORT INFORMATION
  Report Type: Spontaneous
  Country: US (occurrence: US)
  Receive Date: 20240318
  Receipt Date: 20240531
  Transmission Date: 20240716
  Serious: Yes (Death, Hospitalization, Other)
  Sender: FDA-Public Use
  Company Number: US-002147023-NVSC2024US052854

PATIENT
  Age: 21 Year
  Sex: Male
  Weight: 66 kg

DRUGS (40)
  1. KYMRIAH [Suspect]
     Active Substance: TISAGENLECLEUCEL
     Indication: B-cell type acute leukaemia
     Dosage: 30 ML, ONCE/SINGLE ((1.2 X 10E6 TO 2.5 X 10E8 CAR-POSITIVE VIABLE T CELLS, TOTAL VOLUME EQUALS 30 MI
     Route: 042
     Dates: start: 20220425, end: 20220425
  2. METHOTREXATE [Suspect]
     Active Substance: METHOTREXATE
     Indication: Acute lymphocytic leukaemia
     Dosage: UNK
     Route: 065
     Dates: start: 20230919
  3. CYCLOPHOSPHAMIDE [Suspect]
     Active Substance: CYCLOPHOSPHAMIDE
     Indication: Acute lymphocytic leukaemia
     Dosage: UNK
     Route: 065
  4. FLUDARABINE [Suspect]
     Active Substance: FLUDARABINE PHOSPHATE
     Indication: Acute lymphocytic leukaemia
     Dosage: UNK
     Route: 065
  5. CYTARABINE [Suspect]
     Active Substance: CYTARABINE
     Indication: Acute lymphocytic leukaemia
     Dosage: UNK
     Route: 065
  6. PREDNISONE [Suspect]
     Active Substance: PREDNISONE
     Indication: Acute lymphocytic leukaemia
     Dosage: UNK
     Route: 065
  7. PEGASPARGASE [Suspect]
     Active Substance: PEGASPARGASE
     Indication: Acute lymphocytic leukaemia
     Dosage: UNK
     Route: 065
  8. DAUNORUBICIN [Suspect]
     Active Substance: DAUNORUBICIN
     Indication: Acute lymphocytic leukaemia
     Dosage: UNK
     Route: 065
  9. DEXAMETHASONE [Concomitant]
     Active Substance: DEXAMETHASONE
     Indication: Product used for unknown indication
     Dosage: UNK
     Route: 065
     Dates: start: 20230909, end: 20230917
  10. DEXAMETHASONE [Concomitant]
     Active Substance: DEXAMETHASONE
     Dosage: 10 MG
     Route: 042
     Dates: start: 20231223
  11. DEXAMETHASONE [Concomitant]
     Active Substance: DEXAMETHASONE
     Dosage: 10 MG
     Route: 042
     Dates: start: 20231215
  12. DEXAMETHASONE [Concomitant]
     Active Substance: DEXAMETHASONE
     Dosage: 10 MG
     Route: 042
     Dates: start: 20231214, end: 20231214
  13. VINCRISTINE [Concomitant]
     Active Substance: VINCRISTINE
     Indication: Product used for unknown indication
     Dosage: UNK
     Route: 065
     Dates: start: 20230919
  14. METHOTREXATE SODIUM [Concomitant]
     Active Substance: METHOTREXATE SODIUM
     Indication: Product used for unknown indication
     Dosage: UNK
     Route: 037
     Dates: start: 20230919
  15. BLINATUMOMAB [Concomitant]
     Active Substance: BLINATUMOMAB
     Indication: Product used for unknown indication
     Dosage: UNK ( 6 DAYS)
     Route: 065
     Dates: start: 20230927, end: 20231002
  16. BLINATUMOMAB [Concomitant]
     Active Substance: BLINATUMOMAB
     Dosage: UNK
     Route: 065
     Dates: start: 202312
  17. DECITABINE [Concomitant]
     Active Substance: DECITABINE
     Indication: Product used for unknown indication
     Dosage: UNK
     Route: 065
     Dates: start: 20240113, end: 20240117
  18. VENETOCLAX [Concomitant]
     Active Substance: VENETOCLAX
     Indication: Product used for unknown indication
     Dosage: UNK
     Route: 065
     Dates: start: 20240113, end: 20240117
  19. ACETAMINOPHEN [Concomitant]
     Active Substance: ACETAMINOPHEN
     Indication: Product used for unknown indication
     Dosage: 650 MG, Q12H
     Route: 048
     Dates: start: 20231204
  20. ACETAMINOPHEN [Concomitant]
     Active Substance: ACETAMINOPHEN
     Dosage: 650 MG, Q4H (PRN)
     Route: 048
     Dates: start: 20231205
  21. CIPROFLOXACIN [Concomitant]
     Active Substance: CIPROFLOXACIN
     Indication: Febrile neutropenia
     Dosage: 500 MG, QD
     Route: 048
     Dates: start: 20231214, end: 20231224
  22. TYLENOL [Concomitant]
     Active Substance: ACETAMINOPHEN
     Indication: Product used for unknown indication
     Dosage: 650 MG, Q4H (PRN)
     Route: 048
     Dates: start: 20231222
  23. TYLENOL [Concomitant]
     Active Substance: ACETAMINOPHEN
     Dosage: 325 MG, QD
     Route: 048
     Dates: start: 20231211, end: 20231211
  24. TYLENOL [Concomitant]
     Active Substance: ACETAMINOPHEN
     Dosage: 650 MG, QD
     Route: 048
     Dates: start: 20231210, end: 20231210
  25. CEFEPIME [Concomitant]
     Active Substance: CEFEPIME HYDROCHLORIDE
     Indication: Bacterial infection
     Dosage: 2000 MG, Q8H
     Route: 042
     Dates: start: 20231222
  26. CEFEPIME [Concomitant]
     Active Substance: CEFEPIME HYDROCHLORIDE
     Dosage: 2000 MG, ONCE/SINGLE (INFUSE 200ML/HR OVER 30)
     Route: 042
     Dates: start: 20231222, end: 20231222
  27. ACYCLOVIR [Concomitant]
     Active Substance: ACYCLOVIR
     Indication: Product used for unknown indication
     Dosage: 400 MG, BID
     Route: 048
     Dates: start: 20231223
  28. ACYCLOVIR [Concomitant]
     Active Substance: ACYCLOVIR
     Dosage: 400 MG, BID
     Route: 048
     Dates: start: 20231204
  29. MAALOX ANTACID [Concomitant]
     Active Substance: ALUMINUM HYDROXIDE\DIMETHICONE\MAGNESIUM HYDROXIDE
     Indication: Dyspepsia
     Dosage: 30 ML, Q4H
     Route: 048
     Dates: start: 20231204
  30. ALLOPURINOL [Concomitant]
     Active Substance: ALLOPURINOL
     Indication: Product used for unknown indication
     Dosage: 300 MG, QD
     Route: 048
     Dates: start: 20231204
  31. ALTEPLASE [Concomitant]
     Active Substance: ALTEPLASE
     Indication: Product used for unknown indication
     Dosage: 4 MG, ONCE/SINGLE
     Route: 042
     Dates: start: 20231213, end: 20231213
  32. ALTEPLASE [Concomitant]
     Active Substance: ALTEPLASE
     Dosage: 4 MG, ONCE/SINGLE (PRN)
     Route: 042
     Dates: start: 20231204
  33. ANAKINRA [Concomitant]
     Active Substance: ANAKINRA
     Indication: Product used for unknown indication
     Dosage: 100 MG, Q12H = 0.67 ML
     Route: 058
     Dates: start: 20231214
  34. ANAKINRA [Concomitant]
     Active Substance: ANAKINRA
     Dosage: 100 MG, Q12H = 0.67 ML
     Route: 058
     Dates: start: 20231214
  35. ANAKINRA [Concomitant]
     Active Substance: ANAKINRA
     Dosage: 100 MG, Q6H = 0.67 ML
     Route: 058
     Dates: start: 20231215
  36. ANAKINRA [Concomitant]
     Active Substance: ANAKINRA
     Dosage: 100 MG, Q6H = 0.67 ML
     Route: 058
     Dates: start: 20231204
  37. APIXABAN [Concomitant]
     Active Substance: APIXABAN
     Indication: Product used for unknown indication
     Dosage: 5 MG, BID
     Route: 048
     Dates: start: 20231204
  38. APIXABAN [Concomitant]
     Active Substance: APIXABAN
     Dosage: 2.5 MG, BID
     Route: 048
     Dates: start: 20231204
  39. APIXABAN [Concomitant]
     Active Substance: APIXABAN
     Dosage: 10 MG, Q12H
     Route: 048
     Dates: start: 20231213, end: 20231220
  40. APIXABAN [Concomitant]
     Active Substance: APIXABAN
     Dosage: 5 MG, Q12H
     Route: 048
     Dates: start: 20231223

REACTIONS (8)
  - Pulmonary alveolar haemorrhage [Fatal]
  - Acute respiratory failure [Fatal]
  - Acute lymphocytic leukaemia recurrent [Fatal]
  - Mass [Unknown]
  - Germ cell neoplasm [Not Recovered/Not Resolved]
  - Second primary malignancy [Unknown]
  - Pneumonia fungal [Unknown]
  - Testicular swelling [Unknown]

NARRATIVE: CASE EVENT DATE: 20240114
